FAERS Safety Report 11175289 (Version 1)
Quarter: 2015Q2

REPORT INFORMATION
  Report Type: Spontaneous
  Country: FR (occurrence: FR)
  Receive Date: 20150609
  Receipt Date: 20150609
  Transmission Date: 20150821
  Serious: Yes (Hospitalization)
  Sender: FDA-Public Use
  Company Number: FR-PFIZER INC-2015187215

PATIENT
  Age: 50 Year
  Sex: Female
  Weight: 74 kg

DRUGS (3)
  1. TAMOXIFENE CITRATE [Suspect]
     Active Substance: TAMOXIFEN CITRATE
     Indication: OESTROGEN RECEPTOR POSITIVE BREAST CANCER
     Dosage: UNK
     Route: 048
     Dates: start: 200805, end: 201005
  2. AROMASIN [Suspect]
     Active Substance: EXEMESTANE
     Indication: OESTROGEN RECEPTOR POSITIVE BREAST CANCER
     Dosage: UNK
     Route: 048
     Dates: start: 201006, end: 201305
  3. DIETHYLSTILBESTROL [Suspect]
     Active Substance: DIETHYLSTILBESTROL
     Dosage: UNK
     Route: 064
     Dates: start: 1963, end: 1963

REACTIONS (9)
  - Ovarian cyst [None]
  - Diverticulum intestinal [None]
  - Ovarian cancer [Recovering/Resolving]
  - Maternal drugs affecting foetus [None]
  - Congenital uterine anomaly [None]
  - Endometrial adenocarcinoma [Recovering/Resolving]
  - Metastases to peritoneum [None]
  - Oestrogen receptor positive breast cancer [None]
  - Pulmonary mass [None]

NARRATIVE: CASE EVENT DATE: 201402
